FAERS Safety Report 11368920 (Version 1)
Quarter: 2015Q3

REPORT INFORMATION
  Report Type: Spontaneous
  Country: IT (occurrence: IT)
  Receive Date: 20150812
  Receipt Date: 20150812
  Transmission Date: 20151125
  Serious: Yes (Other)
  Sender: FDA-Public Use
  Company Number: IT-ROCHE-1619636

PATIENT
  Age: 30 Year
  Sex: Male

DRUGS (25)
  1. RIBAVIRIN. [Suspect]
     Active Substance: RIBAVIRIN
     Route: 065
     Dates: start: 20140319
  2. DACLATASVIR DIHYDROCHLORIDE [Concomitant]
     Active Substance: DACLATASVIR DIHYDROCHLORIDE
     Route: 065
     Dates: start: 20140221
  3. SOFOSBUVIR [Suspect]
     Active Substance: SOFOSBUVIR
     Indication: HEPATITIS C
     Route: 065
     Dates: start: 20140315
  4. RITUXIMAB [Concomitant]
     Active Substance: RITUXIMAB
     Indication: NON-HODGKIN^S LYMPHOMA
     Route: 042
     Dates: start: 201308
  5. PEG-INTERFERON ALFA 2A [Suspect]
     Active Substance: PEGINTERFERON ALFA-2A
     Indication: HEPATITIS C
     Route: 065
     Dates: start: 201106
  6. PEG-INTERFERON ALFA 2A [Suspect]
     Active Substance: PEGINTERFERON ALFA-2A
     Route: 065
     Dates: start: 20140311
  7. RIBAVIRIN. [Suspect]
     Active Substance: RIBAVIRIN
     Route: 065
     Dates: start: 20140121
  8. IBRITUMOMAB TIUXETAN [Concomitant]
     Active Substance: IBRITUMOMAB TIUXETAN
     Indication: NON-HODGKIN^S LYMPHOMA
     Route: 065
     Dates: start: 201308
  9. ASUNAPREVIR [Concomitant]
     Active Substance: ASUNAPREVIR
     Route: 065
     Dates: start: 20140121
  10. PEG-INTERFERON ALFA 2A [Suspect]
     Active Substance: PEGINTERFERON ALFA-2A
     Route: 065
     Dates: start: 20140221
  11. PEG-INTERFERON ALFA 2A [Suspect]
     Active Substance: PEGINTERFERON ALFA-2A
     Route: 065
     Dates: start: 20140319
  12. ASUNAPREVIR [Concomitant]
     Active Substance: ASUNAPREVIR
     Route: 065
     Dates: start: 20140221
  13. RIBAVIRIN. [Suspect]
     Active Substance: RIBAVIRIN
     Route: 065
     Dates: start: 20140311
  14. RIBAVIRIN. [Suspect]
     Active Substance: RIBAVIRIN
     Route: 065
     Dates: start: 20140315
  15. PEGINTERFERON ALFA-2B [Suspect]
     Active Substance: PEGINTERFERON ALFA-2B
     Indication: HEPATITIS C
     Route: 065
     Dates: start: 201301, end: 201307
  16. RITUXIMAB [Concomitant]
     Active Substance: RITUXIMAB
     Route: 042
     Dates: start: 201203, end: 201207
  17. DACLATASVIR DIHYDROCHLORIDE [Concomitant]
     Active Substance: DACLATASVIR DIHYDROCHLORIDE
     Route: 065
     Dates: start: 20140315
  18. RIBAVIRIN. [Suspect]
     Active Substance: RIBAVIRIN
     Indication: HEPATITIS C
     Route: 065
  19. RIBAVIRIN. [Suspect]
     Active Substance: RIBAVIRIN
     Route: 065
     Dates: start: 201301, end: 201307
  20. DACLATASVIR DIHYDROCHLORIDE [Concomitant]
     Active Substance: DACLATASVIR DIHYDROCHLORIDE
     Route: 065
     Dates: start: 20140311
  21. PEG-INTERFERON ALFA 2A [Suspect]
     Active Substance: PEGINTERFERON ALFA-2A
     Route: 065
     Dates: start: 20140315
  22. DACLATASVIR DIHYDROCHLORIDE [Concomitant]
     Active Substance: DACLATASVIR DIHYDROCHLORIDE
     Route: 065
     Dates: start: 20140121
  23. BENDAMUSTINE [Concomitant]
     Active Substance: BENDAMUSTINE
     Route: 065
     Dates: start: 201203, end: 201207
  24. RIBAVIRIN. [Suspect]
     Active Substance: RIBAVIRIN
     Route: 065
     Dates: start: 20140221
  25. SOFOSBUVIR [Suspect]
     Active Substance: SOFOSBUVIR
     Route: 065
     Dates: start: 20140319

REACTIONS (3)
  - Neuralgia [Unknown]
  - Paraesthesia [Unknown]
  - Pancytopenia [Unknown]
